FAERS Safety Report 24546562 (Version 1)
Quarter: 2024Q4

REPORT INFORMATION
  Report Type: Spontaneous
  Country: ES (occurrence: ES)
  Receive Date: 20241024
  Receipt Date: 20241024
  Transmission Date: 20250114
  Serious: Yes (Hospitalization, Other)
  Sender: PHARMACEUTICAL ASSOC
  Company Number: ES-PAIPHARMA-2024-ES-000115

PATIENT
  Age: 42 Year
  Sex: Female

DRUGS (1)
  1. LITHIUM [Suspect]
     Active Substance: LITHIUM
     Indication: Bipolar disorder

REACTIONS (2)
  - Polyhydramnios [Recovered/Resolved]
  - Nephrogenic diabetes insipidus [Unknown]
